FAERS Safety Report 6218563-2 (Version None)
Quarter: 2009Q2

REPORT INFORMATION
  Report Type: 
  Country: None (occurrence: None)
  Receive Date: 20090608
  Receipt Date: 20090527
  Transmission Date: 20091009
  Serious: Yes (Hospitalization, Other)
  Sender: FDA-Public Use
  Company Number: PHHY2009MX21446

PATIENT
  Sex: Female

DRUGS (2)
  1. CATAFLAM [Suspect]
     Indication: PHARYNGITIS
     Dosage: 5 DRP, Q8H
     Dates: start: 20090319, end: 20090322
  2. CATAFLAM [Suspect]
     Indication: VOMITING

REACTIONS (9)
  - FAECES DISCOLOURED [None]
  - GASTROINTESTINAL HAEMORRHAGE [None]
  - GLYCOGEN STORAGE DISEASE TYPE I [None]
  - HAEMATEMESIS [None]
  - HAEMOGLOBIN DECREASED [None]
  - HEPATITIS [None]
  - HEPATOSPLENOMEGALY [None]
  - MELAENA [None]
  - SYPHILIS TEST POSITIVE [None]
